FAERS Safety Report 20801775 (Version 2)
Quarter: 2022Q2

REPORT INFORMATION
  Report Type: Spontaneous
  Country: NO (occurrence: NO)
  Receive Date: 20220509
  Receipt Date: 20220510
  Transmission Date: 20220721
  Serious: Yes (Other)
  Sender: FDA-Public Use
  Company Number: NO-ROCHE-3084326

PATIENT
  Age: 68 Year
  Sex: Male

DRUGS (16)
  1. DEXAMETHASONE [Suspect]
     Active Substance: DEXAMETHASONE
     Indication: Diffuse large B-cell lymphoma
     Dosage: 4TH LINE SYSTEMIC TREATMENT (R-DHAP)
     Route: 065
     Dates: start: 20220329, end: 20220420
  2. BENDAMUSTINE [Suspect]
     Active Substance: BENDAMUSTINE
     Indication: Diffuse large B-cell lymphoma
     Dosage: 3RD LINE SYSTEMIC TREATMENT (POLATUZUMAB + BENDAMUSTIN)
     Route: 065
     Dates: start: 20220216, end: 20220309
  3. ETOPOSIDE PHOSPHATE [Suspect]
     Active Substance: ETOPOSIDE PHOSPHATE
     Indication: Diffuse large B-cell lymphoma
     Dosage: 1ST LINE SYSTEMIC TREATMENT (BIO-CHIC-PROTOCOL (2X CHOP14 + HD-MXT + 4 X DA-EPOCH)
     Route: 065
     Dates: start: 20200716, end: 20201101
  4. ETOPOSIDE PHOSPHATE [Suspect]
     Active Substance: ETOPOSIDE PHOSPHATE
     Dosage: 2ND LINE SYSTEMIC TREATMENT (3X OBINUTUZUMAB-ICE + AUTOTRANSPLANT BEAM)
     Route: 065
     Dates: start: 20210909, end: 20211022
  5. DOXORUBICIN HYDROCHLORIDE [Suspect]
     Active Substance: DOXORUBICIN HYDROCHLORIDE
     Indication: Diffuse large B-cell lymphoma
     Dosage: 1ST LINE SYSTEMIC TREATMENT (BIO-CHIC-PROTOCOL (2X CHOP14 + HD-MXT + 4 X DA-EPOCH)
     Route: 065
     Dates: start: 20200716, end: 20201101
  6. POLIVY [Suspect]
     Active Substance: POLATUZUMAB VEDOTIN-PIIQ
     Indication: Diffuse large B-cell lymphoma
     Dosage: 3RD LINE SYSTEMIC TREATMENT (POLATUZUMAB + BENDAMUSTIN)
     Route: 065
     Dates: start: 20220216, end: 20220309
  7. PREDNISONE [Suspect]
     Active Substance: PREDNISONE
     Indication: Diffuse large B-cell lymphoma
     Dosage: 1ST LINE SYSTEMIC TREATMENT (BIO-CHIC-PROTOCOL (2X CHOP14 + HD-MXT + 4 X DA-EPOCH)
     Route: 065
     Dates: start: 20200716, end: 20201101
  8. CYTARABINE [Suspect]
     Active Substance: CYTARABINE
     Indication: Diffuse large B-cell lymphoma
     Dosage: 4TH LINE SYSTEMIC TREATMENT (R-DHAP)
     Route: 065
     Dates: start: 20220329, end: 20220420
  9. OBINUTUZUMAB [Suspect]
     Active Substance: OBINUTUZUMAB
     Indication: Diffuse large B-cell lymphoma
     Dosage: 2ND LINE SYSTEMIC TREATMENT (3X OBINUTUZUMAB-ICE + AUTOTRANSPLANT BEAM)
     Route: 065
     Dates: start: 20210909, end: 20211022
  10. CISPLATIN [Suspect]
     Active Substance: CISPLATIN
     Indication: Diffuse large B-cell lymphoma
     Dosage: 4TH LINE SYSTEMIC TREATMENT (R-DHAP)
     Route: 065
     Dates: start: 20220329, end: 20220420
  11. CARBOPLATIN [Suspect]
     Active Substance: CARBOPLATIN
     Indication: Diffuse large B-cell lymphoma
     Route: 065
     Dates: start: 20210909, end: 20211022
  12. CYCLOPHOSPHAMIDE [Suspect]
     Active Substance: CYCLOPHOSPHAMIDE
     Indication: Diffuse large B-cell lymphoma
     Dosage: 1ST LINE SYSTEMIC TREATMENT (BIO-CHIC-PROTOCOL (2X CHOP14 + HD-MXT + 4 X DA-EPOCH)
     Route: 065
     Dates: start: 20200716, end: 20201101
  13. IFOSFAMIDE [Suspect]
     Active Substance: IFOSFAMIDE
     Indication: Diffuse large B-cell lymphoma
     Dosage: 2ND LINE SYSTEMIC TREATMENT (3X OBINUTUZUMAB-ICE + AUTOTRANSPLANT BEAM)
     Route: 065
     Dates: start: 20210909, end: 20211022
  14. RITUXIMAB [Suspect]
     Active Substance: RITUXIMAB
     Indication: Diffuse large B-cell lymphoma
     Dosage: 1ST LINE SYSTEMIC TREATMENT (BIO-CHIC-PROTOCOL (2X CHOP14 + HD-MXT + 4 X DA-EPOCH)
     Route: 065
     Dates: start: 20200716, end: 20201101
  15. RITUXIMAB [Suspect]
     Active Substance: RITUXIMAB
     Dosage: 4TH LINE SYSTEMIC TREATMENT (R-DHAP)
     Dates: start: 20220329, end: 20220420
  16. VINCRISTINE SULFATE [Suspect]
     Active Substance: VINCRISTINE SULFATE
     Indication: Diffuse large B-cell lymphoma
     Dosage: 1ST LINE SYSTEMIC TREATMENT (BIO-CHIC-PROTOCOL (2X CHOP14 + HD-MXT + 4 X DA-EPOCH)
     Route: 065
     Dates: start: 20200716, end: 20201101

REACTIONS (4)
  - Diffuse large B-cell lymphoma [Unknown]
  - Herpes zoster [Unknown]
  - Off label use [Unknown]
  - No adverse event [Unknown]
